APPROVED DRUG PRODUCT: ARIPIPRAZOLE
Active Ingredient: ARIPIPRAZOLE
Strength: 2MG
Dosage Form/Route: TABLET;ORAL
Application: A204111 | Product #001 | TE Code: AB
Applicant: MACLEODS PHARMACEUTICALS LTD
Approved: Oct 7, 2016 | RLD: No | RS: No | Type: RX